FAERS Safety Report 16211549 (Version 1)
Quarter: 2019Q2

REPORT INFORMATION
  Report Type: Spontaneous
  Country: US (occurrence: US)
  Receive Date: 20190418
  Receipt Date: 20190418
  Transmission Date: 20190711
  Serious: Yes (Other)
  Sender: FDA-Public Use
  Company Number: US-CIPLA LTD.-2019US02008

PATIENT

DRUGS (1)
  1. NAPROXEN. [Suspect]
     Active Substance: NAPROXEN
     Dosage: 3000 MILLIGRAM, PER DAY (500 MG EVERY 4 HOURS), EXTREMELY HIGH DOSES, FOR AT LEAST 2 DAYS
     Route: 065

REACTIONS (3)
  - Overdose [Unknown]
  - Spinal epidural haematoma [Recovered/Resolved]
  - Radiculopathy [Recovered/Resolved]
